FAERS Safety Report 14709511 (Version 1)
Quarter: 2018Q2

REPORT INFORMATION
  Report Type: Spontaneous
  Country: GB (occurrence: GB)
  Receive Date: 20180403
  Receipt Date: 20180403
  Transmission Date: 20180711
  Serious: Yes (Other)
  Sender: FDA-Public Use
  Company Number: GB-EPIC PHARMA LLC-2018EPC00187

PATIENT

DRUGS (2)
  1. PHENYTOIN. [Suspect]
     Active Substance: PHENYTOIN
     Indication: EPILEPSY
     Route: 065
  2. ANTIEPILEPTIC [Concomitant]
     Active Substance: UNSPECIFIED INGREDIENT
     Dosage: POSSIBILITY OF NONE TO 3 ADDITIONAL ANTIEPILEPTICS
     Route: 065

REACTIONS (1)
  - Cerebellar atrophy [Unknown]
